FAERS Safety Report 5820302-1 (Version None)
Quarter: 2008Q3

REPORT INFORMATION
  Report Type: 
  Country: None (occurrence: None)
  Receive Date: 20080724
  Receipt Date: 20070531
  Transmission Date: 20090109
  Serious: No
  Sender: FDA-Public Use
  Company Number: A0654117A

PATIENT
  Sex: Male
  Weight: 125 kg

DRUGS (3)
  1. AVANDIA [Suspect]
     Dosage: 8MG IN THE MORNING
     Route: 048
  2. NOVOLIN [Concomitant]
     Dosage: 30MG AT NIGHT
     Route: 058
  3. NOVOLOG [Concomitant]
     Dosage: 15MG SEE DOSAGE TEXT

REACTIONS (3)
  - FATIGUE [None]
  - SOMNOLENCE [None]
  - WEIGHT DECREASED [None]
